FAERS Safety Report 9541946 (Version 1)
Quarter: 2013Q3

REPORT INFORMATION
  Report Type: Spontaneous
  Country: US (occurrence: None)
  Receive Date: 20130919
  Receipt Date: 20130919
  Transmission Date: 20140515
  Serious: Yes (Disabling)
  Sender: FDA-Public Use
  Company Number: None

PATIENT
  Age: 64 Year
  Sex: Female

DRUGS (2)
  1. BUPROPION HCL [Suspect]
     Indication: DEPRESSION
     Route: 048
     Dates: start: 20130906, end: 20130910
  2. BUPROPION HCL [Suspect]
     Indication: ANXIETY
     Route: 048
     Dates: start: 20130906, end: 20130910

REACTIONS (3)
  - Depression [None]
  - Product substitution issue [None]
  - Therapeutic response unexpected with drug substitution [None]
